FAERS Safety Report 5038048-9 (Version None)
Quarter: 2006Q2

REPORT INFORMATION
  Report Type: 
  Country: None (occurrence: None)
  Receive Date: 20060601
  Receipt Date: 20060201
  Transmission Date: 20061013
  Serious: No
  Sender: FDA-Public Use
  Company Number: 2006PV007969

PATIENT
  Age: 51 Year
  Sex: Female
  Weight: 70.7611 kg

DRUGS (2)
  1. BYETTA [Suspect]
     Indication: GLUCOSE TOLERANCE IMPAIRED
     Dosage: 5 MCG;SC
     Route: 058
     Dates: start: 20060131
  2. GLUCOPHAGE [Concomitant]

REACTIONS (1)
  - INJECTION SITE HAEMORRHAGE [None]
